FAERS Safety Report 24263028 (Version 1)
Quarter: 2024Q3

REPORT INFORMATION
  Report Type: Spontaneous
  Country: US (occurrence: None)
  Receive Date: 20240827
  Receipt Date: 20240827
  Transmission Date: 20241016
  Serious: No
  Sender: Public
  Company Number: None

PATIENT
  Age: 9 Year
  Sex: Male
  Weight: 41.4 kg

DRUGS (4)
  1. DUPIXENT [Suspect]
     Active Substance: DUPILUMAB
     Indication: Dermatitis atopic
     Dosage: OTHER FREQUENCY : EVERY 2 WEEKS;?
     Route: 058
     Dates: start: 20240816
  2. CLOBETASOL PROPIONATE EXTERNAL CREAM 0.05% [Concomitant]
  3. ELIDEL [Concomitant]
     Active Substance: PIMECROLIMUS
  4. TYENOL SUSPENSION [Concomitant]

REACTIONS (2)
  - Injection site swelling [None]
  - Injection site bruising [None]

NARRATIVE: CASE EVENT DATE: 20240816
